FAERS Safety Report 4438309-8 (Version None)
Quarter: 2004Q3

REPORT INFORMATION
  Report Type: 
  Country: None (occurrence: None)
  Receive Date: 20040831
  Receipt Date: 20040714
  Transmission Date: 20050211
  Serious: No
  Sender: FDA-Public Use
  Company Number: US-GLAXOSMITHKLINE-A0518227A

PATIENT
  Sex: Female

DRUGS (2)
  1. WELLBUTRIN XL [Suspect]
     Indication: DEPRESSION
     Dates: start: 20040301, end: 20040707
  2. NO CONCURRENT MEDICATION [Concomitant]

REACTIONS (2)
  - ANXIETY [None]
  - FATIGUE [None]
